FAERS Safety Report 6169261-5 (Version None)
Quarter: 2009Q2

REPORT INFORMATION
  Report Type: 
  Country: None (occurrence: None)
  Receive Date: 20090424
  Receipt Date: 20090408
  Transmission Date: 20091009
  Serious: Yes (Disabling)
  Sender: FDA-Public Use
  Company Number: 2009PL000168

PATIENT
  Age: 70 Year
  Sex: Female

DRUGS (11)
  1. LOTRONEX [Suspect]
     Indication: DIARRHOEA
     Dosage: 0.5 MG;QD;PO
     Route: 048
     Dates: start: 20090324, end: 20090330
  2. PRIMIDONE [Concomitant]
  3. VITAMIN B-12 [Concomitant]
  4. SANZOZ [Concomitant]
  5. KLONOPIN [Concomitant]
  6. CHROMIUM PICOLINATE [Concomitant]
  7. EFFEXOR [Concomitant]
  8. FEXOFENADINE [Concomitant]
  9. FOSAMAX [Concomitant]
  10. VITAMIN K [Concomitant]
  11. IMITREX [Concomitant]

REACTIONS (10)
  - ABDOMINAL PAIN [None]
  - ANAL SPHINCTER ATONY [None]
  - BODY TEMPERATURE INCREASED [None]
  - CHROMATURIA [None]
  - DIARRHOEA [None]
  - DIARRHOEA HAEMORRHAGIC [None]
  - DIVERTICULUM INTESTINAL [None]
  - EXCORIATION [None]
  - HAEMORRHOIDS [None]
  - INTESTINAL ANASTOMOSIS [None]
